FAERS Safety Report 25639448 (Version 2)
Quarter: 2025Q3

REPORT INFORMATION
  Report Type: Spontaneous
  Country: GB (occurrence: GB)
  Receive Date: 20250804
  Receipt Date: 20250910
  Transmission Date: 20251020
  Serious: Yes (Other)
  Sender: MYLAN
  Company Number: GB-MYLANLABS-2025M1058523

PATIENT
  Age: 33 Year
  Sex: Female
  Weight: 104.4 kg

DRUGS (15)
  1. CLOZARIL [Suspect]
     Active Substance: CLOZAPINE
     Indication: Psychotic disorder
     Dosage: 100 MILLIGRAM, BID
     Dates: start: 20250710, end: 20250725
  2. CLOZARIL [Suspect]
     Active Substance: CLOZAPINE
     Dosage: 25 MILLIGRAM, BID (25MG BD AND WAS TITRATED UP SLOWLY)
     Dates: start: 20250730
  3. CLOZARIL [Suspect]
     Active Substance: CLOZAPINE
     Dosage: UNK, BID (75 MG AM AND 100MG PM)
     Dates: start: 20250905
  4. SERTRALINE [Concomitant]
     Active Substance: SERTRALINE HYDROCHLORIDE
     Dosage: 200 MILLIGRAM, PM
  5. MIRTAZAPINE [Concomitant]
     Active Substance: MIRTAZAPINE
     Dosage: 45 MILLIGRAM, PM
  6. CHOLECALCIFEROL [Concomitant]
     Active Substance: CHOLECALCIFEROL
     Dosage: UNK, AM (800 UNITS)
  7. DESOGESTREL [Concomitant]
     Active Substance: DESOGESTREL
     Dosage: 75 MILLIGRAM, AM
  8. OMEPRAZOLE [Concomitant]
     Active Substance: OMEPRAZOLE
     Dosage: 20 MILLIGRAM, BID (AM, PM)
  9. POLYETHYLENE GLYCOL 3350\POTASSIUM CHLORIDE\SODIUM BICARBONATE\SODIUM [Concomitant]
     Active Substance: POLYETHYLENE GLYCOL 3350\POTASSIUM CHLORIDE\SODIUM BICARBONATE\SODIUM CHLORIDE
     Dosage: 1 DOSAGE FORM, BID (1 SACHET DAILY; AM AND PM)
  10. PROMETHAZINE [Concomitant]
     Active Substance: PROMETHAZINE HYDROCHLORIDE
     Dosage: 25 MILLIGRAM, PM
  11. ALBUTEROL [Concomitant]
     Active Substance: ALBUTEROL
  12. LORAZEPAM [Concomitant]
     Active Substance: LORAZEPAM
  13. PROMETHAZINE [Concomitant]
     Active Substance: PROMETHAZINE HYDROCHLORIDE
     Dosage: 75 MILLIGRAM, QD (4 HOURLY MAXIMUM 75MG/DAY INCLUDING REGULAR)
  14. PROMETHAZINE [Concomitant]
     Active Substance: PROMETHAZINE HYDROCHLORIDE
  15. IVABRADINE [Concomitant]
     Active Substance: IVABRADINE
     Dosage: 5 MILLIGRAM, BID (AM, PM)
     Dates: start: 20250728

REACTIONS (3)
  - Tachycardia [Recovered/Resolved]
  - Cellulitis [Unknown]
  - Off label use [Unknown]

NARRATIVE: CASE EVENT DATE: 20250710
